FAERS Safety Report 7208485-2 (Version None)
Quarter: 2011Q1

REPORT INFORMATION
  Report Type: 
  Country: None (occurrence: None)
  Receive Date: 20110104
  Receipt Date: 20101220
  Transmission Date: 20110831
  Serious: Yes (Other)
  Sender: FDA-Public Use
  Company Number: US-RANBAXY-2010RR-40815

PATIENT
  Sex: Male

DRUGS (5)
  1. CIPROFLOXACIN [Suspect]
     Indication: INFECTION
     Dosage: UNK
     Dates: start: 20060719
  2. LEVAQUIN [Suspect]
     Dosage: UNK
     Dates: start: 20060101
  3. LEVAQUIN [Suspect]
     Indication: EAR PAIN
     Dosage: UNK
     Route: 048
     Dates: start: 20070101
  4. LEVAQUIN [Suspect]
     Indication: UPPER RESPIRATORY TRACT INFECTION
  5. LEVAQUIN [Suspect]

REACTIONS (1)
  - ROTATOR CUFF SYNDROME [None]
